FAERS Safety Report 9632985 (Version 2)
Quarter: 2013Q4

REPORT INFORMATION
  Report Type: Report from Study
  Country: US (occurrence: US)
  Receive Date: 20131018
  Receipt Date: 20131018
  Transmission Date: 20140711
  Serious: Yes (Other)
  Sender: FDA-Public Use
  Company Number: US-MERCK-1305USA001075

PATIENT
  Sex: 0

DRUGS (4)
  1. HEXADROL TABLETS [Suspect]
     Dosage: 20MG P.O. ON DAYS 1,2,4,5,8,9,11,12 EVERY 21DAYS FOR 2 CYCLES
     Route: 048
  2. HEXADROL TABLETS [Suspect]
     Dosage: 20MG PO ON DAYS 1, 2, 8, 9, 15, 16 AND 22, 23 FOR 4 CYCLES
     Route: 048
  3. BORTEZOMIB [Suspect]
     Dosage: 1.3 MG/M2 I.V. DAYS 1, 4, 8, 11 FOR 2 CYCLES
     Route: 042
  4. BORTEZOMIB [Suspect]
     Dosage: 1.3 MG/M2 I.V. DAYS 1, 8,15 AND 22 FOR 4 CYCLES
     Route: 042

REACTIONS (1)
  - Cardiac failure congestive [Unknown]
